FAERS Safety Report 6963673-5 (Version None)
Quarter: 2010Q3

REPORT INFORMATION
  Report Type: 
  Country: None (occurrence: None)
  Receive Date: 20100902
  Receipt Date: 20100823
  Transmission Date: 20110219
  Serious: Yes (Other)
  Sender: FDA-Public Use
  Company Number: US-ENDO PHARMACEUTICALS INC.-PERC20100111

PATIENT
  Sex: Female

DRUGS (9)
  1. PERCOCET [Suspect]
     Indication: BACK PAIN
     Dosage: UNK
  2. PERCOCET [Suspect]
     Indication: GAIT DISTURBANCE
  3. METHYLPREDNISOLONE [Suspect]
     Indication: BACK PAIN
     Dosage: UNK
     Dates: start: 20011201
  4. METHYLPREDNISOLONE [Suspect]
     Indication: GAIT DISTURBANCE
  5. ULTRAM [Suspect]
     Indication: BACK PAIN
     Dosage: UNK
  6. ULTRAM [Suspect]
     Indication: GAIT DISTURBANCE
  7. BEXTRA [Concomitant]
     Indication: PAIN
     Dosage: UNK
  8. PRILOSEC [Concomitant]
     Indication: PRODUCT USED FOR UNKNOWN INDICATION
     Dosage: UNK
  9. OXYCONTIN [Concomitant]
     Indication: PAIN
     Dosage: UNK

REACTIONS (2)
  - BACK PAIN [None]
  - DRUG INEFFECTIVE [None]
